FAERS Safety Report 5736528-1 (Version None)
Quarter: 2008Q2

REPORT INFORMATION
  Report Type: 
  Country: None (occurrence: None)
  Receive Date: 20080513
  Receipt Date: 20080328
  Transmission Date: 20081010
  Serious: Yes (Hospitalization)
  Sender: FDA-Public Use
  Company Number: FR-BRISTOL-MYERS SQUIBB COMPANY-14138697

PATIENT
  Age: 28 Year
  Sex: Male

DRUGS (3)
  1. LISODREN TABS [Suspect]
     Indication: ADRENOCORTICAL CARCINOMA
     Dosage: 6 DOSAGE FORM;ORAL;24-AUG-07 TO 07-SEP-07 AND 3DOSAGE FORM FROM 01-OCT-07 TO 21-OCT-07
     Route: 048
     Dates: start: 20070824, end: 20071022
  2. HYDROCORTISONE [Concomitant]
  3. FLUDROCORTISONE ACETATE [Concomitant]

REACTIONS (1)
  - NEUTROPENIA [None]
